FAERS Safety Report 21126362 (Version 2)
Quarter: 2022Q3

REPORT INFORMATION
  Report Type: Spontaneous
  Country: JP (occurrence: JP)
  Receive Date: 20220725
  Receipt Date: 20220729
  Transmission Date: 20221027
  Serious: Yes (Death, Hospitalization)
  Sender: FDA-Public Use
  Company Number: JP-JNJFOC-20220700410

PATIENT
  Age: 83 Year
  Sex: Male
  Weight: 47 kg

DRUGS (5)
  1. ZYTIGA [Suspect]
     Active Substance: ABIRATERONE ACETATE
     Indication: Prostate cancer metastatic
     Route: 048
     Dates: start: 20220413, end: 20220621
  2. AMLODIPINE [Concomitant]
     Active Substance: AMLODIPINE BESYLATE
     Route: 048
     Dates: end: 20220621
  3. SENNOSIDES [Concomitant]
     Active Substance: SENNOSIDES
     Route: 048
     Dates: end: 20220621
  4. DEGARELIX [Concomitant]
     Active Substance: DEGARELIX
     Dosage: DOSE UNKNOWN
     Route: 058
     Dates: start: 20220330, end: 20220622
  5. PREDONINE [Concomitant]
     Active Substance: PREDNISOLONE
     Route: 048
     Dates: start: 20220413, end: 20220621

REACTIONS (1)
  - Drug-induced liver injury [Fatal]

NARRATIVE: CASE EVENT DATE: 20220622
